FAERS Safety Report 9839245 (Version 1)
Quarter: 2014Q1

REPORT INFORMATION
  Report Type: Spontaneous
  Country: US (occurrence: US)
  Receive Date: 20140123
  Receipt Date: 20140123
  Transmission Date: 20141002
  Serious: Yes (Hospitalization)
  Sender: FDA-Public Use
  Company Number: US-B.I. PHARMACEUTICALS,INC./RIDGEFIELD-2014-BI-02663PF

PATIENT
  Sex: Female

DRUGS (23)
  1. SPIRIVA [Suspect]
     Dosage: 1 PUF
  2. VALIUM [Concomitant]
     Dosage: 5 MG
  3. TRAMADOL [Concomitant]
     Dosage: 150 MG
  4. BACLOFEN [Concomitant]
     Dosage: 10 MG
  5. LEVOTHROID [Concomitant]
     Dosage: 88 MCG
  6. VITAMIN D3- OSOSL D [Concomitant]
     Dosage: 2 ANZ
  7. CHOLECALCIFEROL [Concomitant]
     Dosage: 1000 U
  8. LASIX [Concomitant]
     Dosage: 40 MG
  9. COHEE [Concomitant]
     Dosage: 200 MG
  10. ZOCOR [Concomitant]
     Dosage: 20 MG
  11. CELEBREX [Concomitant]
     Dosage: 200 MG
  12. ASPIRIN [Concomitant]
     Dosage: 81 MG
  13. PRIMIDONE [Concomitant]
     Dosage: 250 MG
  14. ADVAIR DISKUS [Concomitant]
     Dosage: 1 PUF
  15. HYDROCODONE [Concomitant]
     Dosage: 7.5/325 MG
  16. PROZAC [Concomitant]
     Dosage: 20 MG
  17. TRAZODONE [Concomitant]
     Dosage: 50 MG
  18. MECLIZINE [Concomitant]
     Dosage: 25 MG
  19. PANTOPRAZOLE [Concomitant]
     Dosage: 40 MG
  20. METOCLOPRAMIDE [Concomitant]
     Dosage: 10 MG
  21. METFORMIN [Concomitant]
     Dosage: 850 MG
  22. GABAPENTIN [Concomitant]
     Dosage: 800 MG
  23. REGULAR INSULIN SLIDING SCALE [Concomitant]
     Dosage: LOW DOSE

REACTIONS (2)
  - Diabetes mellitus [Unknown]
  - Depression [Unknown]
